FAERS Safety Report 8509265-8 (Version None)
Quarter: 2012Q3

REPORT INFORMATION
  Report Type: 
  Country: None (occurrence: None)
  Receive Date: 20120703
  Receipt Date: 20120627
  Transmission Date: 20120928
  Serious: Yes (Hospitalization, Other)
  Sender: FDA-Public Use
  Company Number: GER/UKI/12/0024816

PATIENT
  Sex: Female

DRUGS (2)
  1. DONEPEZIL HCL [Suspect]
     Indication: PRODUCT USED FOR UNKNOWN INDICATION
     Dosage: 10 MG, 1 IN 1 D, ORAL
     Route: 048
  2. E-45 (ACUAFIL /02145701/) [Concomitant]

REACTIONS (2)
  - BRADYCARDIA [None]
  - ELECTROCARDIOGRAM QT PROLONGED [None]
